FAERS Safety Report 11286118 (Version 1)
Quarter: 2015Q3

REPORT INFORMATION
  Report Type: Spontaneous
  Country: AR (occurrence: None)
  Receive Date: 20150717
  Receipt Date: 20150717
  Transmission Date: 20151125
  Serious: Yes (Hospitalization)
  Sender: FDA-Public Use
  Company Number: 2015-11726

PATIENT
  Age: 60 Year
  Sex: Male

DRUGS (6)
  1. NEFAZAN (CLOPIDOGREL BISULFATE) [Concomitant]
  2. ATORVASTATIN [Concomitant]
     Active Substance: ATORVASTATIN
  3. OMEPRAZOLE. [Concomitant]
     Active Substance: OMEPRAZOLE
  4. LOTRIAL (ENALAPRIL MALEATE) [Concomitant]
  5. INSULIN [Concomitant]
     Active Substance: INSULIN NOS
  6. EYLEA [Suspect]
     Active Substance: AFLIBERCEPT
     Indication: PRODUCT USED FOR UNKNOWN INDICATION
     Dates: start: 201409

REACTIONS (1)
  - Peripheral vascular disorder [None]

NARRATIVE: CASE EVENT DATE: 20150708
